FAERS Safety Report 5004118-4 (Version None)
Quarter: 2006Q2

REPORT INFORMATION
  Report Type: 
  Country: None (occurrence: None)
  Receive Date: 20060517
  Receipt Date: 20060508
  Transmission Date: 20061013
  Serious: Yes (Death)
  Sender: FDA-Public Use
  Company Number: US-AMGEN-US178825

PATIENT
  Sex: Male

DRUGS (12)
  1. ARANESP [Suspect]
     Indication: ANAEMIA OF MALIGNANT DISEASE
     Route: 058
     Dates: start: 20050705, end: 20051024
  2. ALPRAZOLAM [Concomitant]
     Dates: start: 20050831
  3. AMBIEN [Concomitant]
     Dates: start: 20050103
  4. MORPHINE SULFATE [Concomitant]
     Dates: start: 20050512
  5. OXYCODONE [Concomitant]
     Dates: start: 20050107
  6. PAROXETINE [Concomitant]
     Dates: start: 20050131, end: 20050829
  7. OXYCONTIN [Concomitant]
     Dates: start: 20050916
  8. PERCOCET [Concomitant]
     Dates: start: 20041213
  9. FUROSEMIDE [Concomitant]
     Dates: start: 20050831
  10. K-DUR 10 [Concomitant]
     Dates: start: 20050831
  11. LANSOPRAZOLE [Concomitant]
     Dates: start: 20050131
  12. MS CONTIN [Concomitant]
     Dates: start: 20050706

REACTIONS (1)
  - DISEASE PROGRESSION [None]
